FAERS Safety Report 22287552 (Version 2)
Quarter: 2025Q2

REPORT INFORMATION
  Report Type: Spontaneous
  Country: CA (occurrence: CA)
  Receive Date: 20230505
  Receipt Date: 20250623
  Transmission Date: 20250716
  Serious: Yes (Other)
  Sender: ORGANON
  Company Number: CA-ORGANON-O2305CAN000172

PATIENT
  Age: 34 Year
  Sex: Female

DRUGS (3)
  1. DIPROSONE [Suspect]
     Active Substance: BETAMETHASONE DIPROPIONATE
     Indication: Premature labour
     Route: 030
  2. AMPICILLIN [Suspect]
     Active Substance: AMPICILLIN
     Indication: Premature labour
     Route: 042
  3. GENTAMICIN [Suspect]
     Active Substance: GENTAMICIN
     Indication: Premature labour
     Route: 042

REACTIONS (4)
  - Delivery [Unknown]
  - Maternal exposure during pregnancy [Unknown]
  - Premature delivery [Unknown]
  - Product use in unapproved indication [Unknown]
